FAERS Safety Report 16461256 (Version 7)
Quarter: 2020Q2

REPORT INFORMATION
  Report Type: Report from Study
  Country: US (occurrence: US)
  Receive Date: 20190620
  Receipt Date: 20200427
  Transmission Date: 20200713
  Serious: Yes (Hospitalization)
  Sender: FDA-Public Use
  Company Number: US-ACTELION-A-US2019-191889

PATIENT
  Age: 57 Year
  Sex: Female

DRUGS (2)
  1. OPSUMIT [Suspect]
     Active Substance: MACITENTAN
     Indication: PULMONARY ARTERIAL HYPERTENSION
     Dosage: 10 MG, QD
     Route: 048
     Dates: start: 20160109, end: 20200101
  2. ADEMPAS [Concomitant]
     Active Substance: RIOCIGUAT

REACTIONS (11)
  - Fluid retention [Recovered/Resolved]
  - Chronic kidney disease [Unknown]
  - Lung transplant [Recovered/Resolved]
  - Cardiac failure [Unknown]
  - Acute kidney injury [Not Recovered/Not Resolved]
  - Pulmonary arterial hypertension [Unknown]
  - Disease progression [Unknown]
  - Renal transplant [Not Recovered/Not Resolved]
  - Renal failure [Recovered/Resolved]
  - Atrial fibrillation [Not Recovered/Not Resolved]
  - Blood potassium increased [Recovered/Resolved]

NARRATIVE: CASE EVENT DATE: 20190507
